FAERS Safety Report 8326544-8 (Version None)
Quarter: 2012Q1

REPORT INFORMATION
  Report Type: 
  Country: None (occurrence: None)
  Receive Date: 20120315
  Receipt Date: 20110301
  Transmission Date: 20120608
  Serious: No
  Sender: FDA-Public Use
  Company Number: PHHY2011US17399

PATIENT
  Age: 33 Year
  Sex: Female

DRUGS (3)
  1. GILENYA [Suspect]
     Dosage: 0.5 MG, QD, ORAL
     Route: 048
     Dates: start: 20110105
  2. AMITRIPTYLINE HCL [Concomitant]
  3. TOPAMAX [Concomitant]

REACTIONS (7)
  - COUGH [None]
  - PYREXIA [None]
  - VIRAL INFECTION [None]
  - PAIN [None]
  - INCREASED UPPER AIRWAY SECRETION [None]
  - DECREASED APPETITE [None]
  - CHILLS [None]
